FAERS Safety Report 6817058-2 (Version None)
Quarter: 2010Q3

REPORT INFORMATION
  Report Type: 
  Country: None (occurrence: None)
  Receive Date: 20100706
  Receipt Date: 20100628
  Transmission Date: 20110219
  Serious: Yes (Death, Hospitalization)
  Sender: FDA-Public Use
  Company Number: IT-MPIJNJ-2010-02428

PATIENT

DRUGS (12)
  1. VELCADE [Suspect]
     Indication: MULTIPLE MYELOMA
     Dosage: 2 MG, UNK
     Route: 042
     Dates: start: 20091112, end: 20091123
  2. FUROSEMIDE [Concomitant]
  3. POTASSIUM CANRENOATE [Concomitant]
  4. WARFARIN SODIUM [Concomitant]
  5. INSULIN LISPRO [Concomitant]
     Indication: DIABETES MELLITUS
  6. MELPHALAN HYDROCHLORIDE [Concomitant]
  7. PREDNISONE TAB [Concomitant]
  8. FLUCONAZOLE [Concomitant]
  9. BACTRIM [Concomitant]
  10. ESOMEPRAZOLE MAGNESIUM [Concomitant]
  11. DIGOXIN [Concomitant]
  12. RAMIPRIL [Concomitant]

REACTIONS (6)
  - BRONCHITIS [None]
  - CEREBRAL ISCHAEMIA [None]
  - COLITIS [None]
  - DEATH [None]
  - NEUROPATHY PERIPHERAL [None]
  - RESPIRATORY FAILURE [None]
